FAERS Safety Report 26154390 (Version 1)
Quarter: 2025Q4

REPORT INFORMATION
  Report Type: Spontaneous
  Country: US (occurrence: US)
  Receive Date: 20251215
  Receipt Date: 20251215
  Transmission Date: 20260118
  Serious: No
  Sender: ELI LILLY AND COMPANY
  Company Number: US-ELI_LILLY_AND_COMPANY-US202511027130

PATIENT
  Age: 65 Year
  Sex: Female

DRUGS (2)
  1. ZEPBOUND [Suspect]
     Active Substance: TIRZEPATIDE
     Indication: Weight control
     Dosage: 2.5 MG, UNKNOWN
     Route: 065
     Dates: start: 20241222
  2. ZEPBOUND [Suspect]
     Active Substance: TIRZEPATIDE
     Indication: Weight control
     Dosage: 5 MG, UNKNOWN
     Route: 065

REACTIONS (8)
  - Drug intolerance [Recovered/Resolved]
  - Drug screen positive [Not Recovered/Not Resolved]
  - Injection site infection [Recovered/Resolved]
  - Injection site cyst [Recovered/Resolved]
  - Injection site haemorrhage [Recovered/Resolved]
  - Injection site scar [Unknown]
  - Injection site pain [Recovered/Resolved]
  - Malaise [Unknown]

NARRATIVE: CASE EVENT DATE: 20250406
